FAERS Safety Report 7037231-0 (Version None)
Quarter: 2010Q4

REPORT INFORMATION
  Report Type: 
  Country: None (occurrence: None)
  Receive Date: 20101011
  Receipt Date: 20100930
  Transmission Date: 20110411
  Serious: Yes (Other)
  Sender: FDA-Public Use
  Company Number: AR-ROCHE-730389

PATIENT
  Sex: Female

DRUGS (2)
  1. TOCILIZUMAB [Suspect]
     Dosage: FREQUENCY REPORTED AS MONTHLY
     Route: 042
  2. TOCILIZUMAB [Suspect]
     Route: 042

REACTIONS (1)
  - BLADDER CANCER [None]
